FAERS Safety Report 8572221-8 (Version None)
Quarter: 2012Q3

REPORT INFORMATION
  Report Type: 
  Country: None (occurrence: None)
  Receive Date: 20120806
  Receipt Date: 20120730
  Transmission Date: 20120928
  Serious: Yes (Death)
  Sender: FDA-Public Use
  Company Number: JP-ASTELLAS-2012JP007193

PATIENT
  Age: 66 Year
  Sex: Female

DRUGS (14)
  1. METHOTREXATE [Concomitant]
     Route: 065
  2. REMICADE [Concomitant]
     Route: 041
  3. PREDNISOLONE [Concomitant]
     Route: 065
  4. DICLOFENAC SODIUM [Concomitant]
     Route: 065
  5. PROGRAF [Suspect]
     Indication: RHEUMATOID ARTHRITIS
     Route: 065
  6. ENBREL [Concomitant]
     Route: 058
  7. ISONIAZID [Concomitant]
     Route: 065
  8. ETODOLAC [Concomitant]
     Route: 048
  9. ALUMINUM HYDROXIDE GEL [Concomitant]
     Route: 048
  10. AMLODIPINE [Concomitant]
     Route: 048
  11. ALFACALCIDOL [Concomitant]
     Route: 048
  12. FOLIC ACID [Concomitant]
     Route: 065
  13. DIOVAN [Concomitant]
     Route: 048
  14. FAMOTIDINE [Concomitant]
     Route: 065

REACTIONS (1)
  - HEPATITIS B [None]
